FAERS Safety Report 16308482 (Version 2)
Quarter: 2019Q2

REPORT INFORMATION
  Report Type: Report from Study
  Country: US (occurrence: US)
  Receive Date: 20190514
  Receipt Date: 20190618
  Transmission Date: 20190711
  Serious: Yes (Other)
  Sender: FDA-Public Use
  Company Number: US-ROCHE-2316076

PATIENT
  Age: 67 Year
  Sex: Male
  Weight: 85.81 kg

DRUGS (7)
  1. CYCLOPHOSPHAMIDE. [Suspect]
     Active Substance: CYCLOPHOSPHAMIDE
     Indication: RICHTER^S SYNDROME
     Dosage: DOSE LEVEL 3
     Route: 042
     Dates: start: 20180417, end: 20180426
  2. VENETOCLAX. [Suspect]
     Active Substance: VENETOCLAX
     Indication: RICHTER^S SYNDROME
     Route: 048
     Dates: start: 20180417, end: 20180424
  3. ONCOVIN [Suspect]
     Active Substance: VINCRISTINE SULFATE
     Indication: RICHTER^S SYNDROME
     Dosage: DOSE LEVEL 3
     Route: 042
     Dates: start: 20180417, end: 20180426
  4. PREDNISONE. [Suspect]
     Active Substance: PREDNISONE
     Indication: RICHTER^S SYNDROME
     Dosage: DOSE LEVEL 3
     Route: 042
     Dates: start: 20180417, end: 20180426
  5. DOXORUBICIN HYDROCHLORIDE. [Suspect]
     Active Substance: DOXORUBICIN HYDROCHLORIDE
     Indication: RICHTER^S SYNDROME
     Dosage: DOSE LEVEL 3
     Route: 042
     Dates: start: 20180417, end: 20180421
  6. RITUXIMAB. [Suspect]
     Active Substance: RITUXIMAB
     Indication: RICHTER^S SYNDROME
     Dosage: DOSE LEVEL 3
     Route: 042
     Dates: start: 20180417, end: 20180426
  7. ETOPOSIDE. [Suspect]
     Active Substance: ETOPOSIDE
     Indication: RICHTER^S SYNDROME
     Dosage: DOSE LEVEL 3
     Route: 042
     Dates: start: 20180417, end: 20180426

REACTIONS (1)
  - Alanine aminotransferase increased [Unknown]

NARRATIVE: CASE EVENT DATE: 20180421
